FAERS Safety Report 15728109 (Version 4)
Quarter: 2020Q2

REPORT INFORMATION
  Report Type: Spontaneous
  Country: US (occurrence: US)
  Receive Date: 20181217
  Receipt Date: 20200610
  Transmission Date: 20200713
  Serious: No
  Sender: FDA-Public Use
  Company Number: US-PFIZER INC-2018517025

PATIENT
  Age: 9 Year
  Sex: Male

DRUGS (2)
  1. GENOTROPIN [Suspect]
     Active Substance: SOMATROPIN
     Dosage: 1 MG
  2. GENOTROPIN [Suspect]
     Active Substance: SOMATROPIN
     Indication: FLOATING-HARBOR SYNDROME
     Dosage: 0.9 MG, DAILY
     Dates: start: 20180120

REACTIONS (5)
  - Circumstance or information capable of leading to device use error [Unknown]
  - Device issue [Not Recovered/Not Resolved]
  - Product use in unapproved indication [Unknown]
  - Glycosylated haemoglobin increased [Unknown]
  - Off label use [Unknown]

NARRATIVE: CASE EVENT DATE: 20180120
